FAERS Safety Report 9379077 (Version 5)
Quarter: 2013Q4

REPORT INFORMATION
  Report Type: Spontaneous
  Country: US (occurrence: None)
  Receive Date: 20130529
  Receipt Date: 20131021
  Transmission Date: 20140711
  Serious: Yes (Death, Hospitalization)
  Sender: FDA-Public Use
  Company Number: 2013US001268

PATIENT
  Age: 65 Year
  Sex: Female
  Weight: 78 kg

DRUGS (29)
  1. PONATINIB [Suspect]
     Indication: CHRONIC MYELOID LEUKAEMIA
     Route: 048
     Dates: start: 20090131
  2. PONATINIB [Suspect]
     Indication: HAEMATOLOGICAL MALIGNANCY
     Route: 048
     Dates: start: 20090131
  3. ADVAIR (FLUTICASONE PROPIONATE,SALMETEROL XINAFOATE) [Concomitant]
  4. COUMADIN (COUMARIN) [Concomitant]
  5. FLONASE (FLUTICASONE PROPIONATE) [Concomitant]
  6. LASIX (FUROSEMIDE) [Concomitant]
  7. MEVACOR (LOVASTATIN) [Concomitant]
  8. NEURONTIN (GABAPENTIN) [Concomitant]
  9. POTASSIUM (POTASSIUM) [Concomitant]
  10. VITAMIN D (VITAMIN D) [Concomitant]
  11. ZOLOFT (SERTRALINE HYDROCHLORIDE) [Concomitant]
  12. LOPID (GEMFIBROZIL) [Concomitant]
  13. FISH OIL (FISH OIL) [Concomitant]
  14. VITAMIN C (VITAMIN C) [Concomitant]
  15. ASPIRIN (ASPIRIN) [Concomitant]
  16. CORTISONE (CORTISONE) [Concomitant]
  17. CLARITHROMYCIN (CLARITHROMYCIN) [Concomitant]
  18. DOXYCYCLINE (DOXYCYCLINE) [Concomitant]
  19. K-DUR (POTASSIUM CHLORIDE) [Concomitant]
  20. NORVASC (AMLODIPINE BESILATE) [Concomitant]
  21. HYDROCODONE (HYDROCODONE) [Concomitant]
  22. PLAVIX (CLOPIDOGREL BISULFATE) [Concomitant]
  23. LYRICA (PREGABALIN) [Concomitant]
  24. TYLENOL (PARACETAMOL) [Concomitant]
  25. ALDACTONE (SPIRONOLACTONE) [Concomitant]
  26. DULERA )FORMOTEROL FUMARATE, MOMETASONE FUROATE) [Concomitant]
  27. PROVENTIL (SALBUTAMOL SULFATE) [Concomitant]
  28. TOPROL (METOPROLOL SUCCINATE) [Concomitant]
  29. MINIPRESS (PRAZOSIN HYDROCHLORIDE) [Concomitant]

REACTIONS (6)
  - Intestinal ischaemia [None]
  - Ascites [None]
  - Acute respiratory failure [None]
  - Hypertensive crisis [None]
  - Gastrointestinal necrosis [None]
  - Arterial thrombosis [None]
